FAERS Safety Report 15209934 (Version 1)
Quarter: 2018Q3

REPORT INFORMATION
  Report Type: Spontaneous
  Country: IN (occurrence: IN)
  Receive Date: 20180727
  Receipt Date: 20180727
  Transmission Date: 20181010
  Serious: Yes (Death, Life-Threatening, Other)
  Sender: FDA-Public Use
  Company Number: IN-MYLANLABS-2018M1056121

PATIENT
  Age: 42 Year
  Sex: Male

DRUGS (3)
  1. DOPAMINE [Concomitant]
     Active Substance: DOPAMINE\DOPAMINE HYDROCHLORIDE
     Indication: PROPHYLAXIS
     Route: 050
  2. MILRINONE [Suspect]
     Active Substance: MILRINONE
     Indication: CEREBRAL VASOCONSTRICTION
     Route: 013
  3. MILRINONE [Suspect]
     Active Substance: MILRINONE
     Route: 042

REACTIONS (4)
  - Arrhythmia [Fatal]
  - Tachyarrhythmia [Recovered/Resolved]
  - Cardiac arrest [Fatal]
  - Hypotension [Recovered/Resolved]
